FAERS Safety Report 18784859 (Version 1)
Quarter: 2021Q1

REPORT INFORMATION
  Report Type: Other
  Country: US (occurrence: US)
  Receive Date: 20210125
  Receipt Date: 20210125
  Transmission Date: 20210419
  Serious: Yes (Other)
  Sender: FDA-Public Use
  Company Number: US-ROCHE-2546999

PATIENT
  Age: 2 Year
  Sex: Male

DRUGS (4)
  1. RITUXIMAB. [Suspect]
     Active Substance: RITUXIMAB
     Indication: CHOLESTASIS
     Route: 065
  2. SIROLIMUS. [Concomitant]
     Active Substance: SIROLIMUS
  3. TACROLIMUS. [Concomitant]
     Active Substance: TACROLIMUS
     Route: 048
  4. METHYLPREDNISOLONE. [Concomitant]
     Active Substance: METHYLPREDNISOLONE
     Route: 042

REACTIONS (1)
  - Clostridium difficile infection [Recovering/Resolving]
